FAERS Safety Report 7207886-6 (Version None)
Quarter: 2010Q4

REPORT INFORMATION
  Report Type: 
  Country: None (occurrence: None)
  Receive Date: 20101221
  Receipt Date: 20101210
  Transmission Date: 20110411
  Serious: Yes (Hospitalization)
  Sender: FDA-Public Use
  Company Number: 2010JP007356

PATIENT
  Age: 33 Year
  Sex: Female

DRUGS (13)
  1. TACROLIMUS [Suspect]
     Indication: PANCREAS TRANSPLANT
     Dosage: SEE IMAGE
     Route: 048
     Dates: start: 20070809, end: 20070811
  2. TACROLIMUS [Suspect]
     Indication: PANCREAS TRANSPLANT
     Dosage: SEE IMAGE
     Route: 048
     Dates: start: 20070812, end: 20070812
  3. TACROLIMUS [Suspect]
     Indication: PANCREAS TRANSPLANT
     Dosage: SEE IMAGE
     Route: 048
     Dates: start: 20070812, end: 20070812
  4. TACROLIMUS [Suspect]
     Indication: PANCREAS TRANSPLANT
     Dosage: SEE IMAGE
     Route: 048
     Dates: start: 20070813, end: 20070813
  5. TACROLIMUS [Suspect]
     Indication: PANCREAS TRANSPLANT
     Dosage: SEE IMAGE
     Route: 048
     Dates: start: 20070814, end: 20070814
  6. TACROLIMUS [Suspect]
     Indication: PANCREAS TRANSPLANT
     Dosage: SEE IMAGE
     Route: 048
     Dates: start: 20070814, end: 20070815
  7. TACROLIMUS [Suspect]
     Indication: PANCREAS TRANSPLANT
     Dosage: SEE IMAGE
     Route: 048
     Dates: start: 20070815, end: 20070816
  8. TACROLIMUS [Suspect]
     Indication: PROPHYLAXIS AGAINST TRANSPLANT REJECTION
     Dosage: 2 MG, UID/QD, IV DRIP
     Route: 041
     Dates: start: 20070810, end: 20070810
  9. METHYLPREDNISOLONE [Concomitant]
  10. CELLCEPT [Concomitant]
  11. BASILIXIMAB (BASILIXIMAB) [Concomitant]
  12. HUMULIN R [Concomitant]
  13. FLOMOXEF (FLOMOXEF) [Concomitant]

REACTIONS (1)
  - GRAFT ISCHAEMIA [None]
